FAERS Safety Report 8775061 (Version 5)
Quarter: 2013Q2

REPORT INFORMATION
  Report Type: Spontaneous
  Country: JP (occurrence: JP)
  Receive Date: 20120910
  Receipt Date: 20130401
  Transmission Date: 20140414
  Serious: Yes (Hospitalization)
  Sender: FDA-Public Use
  Company Number: JP-JNJFOC-20120900684

PATIENT
  Age: 78 Year
  Sex: Female

DRUGS (26)
  1. SIMPONI [Suspect]
     Indication: RHEUMATOID ARTHRITIS
     Dosage: DOSAGE WAS CONFLICTINGLY REPORTED AS 50 MG ^1 PER 1 DAY^.
     Route: 058
     Dates: start: 20120114, end: 20120628
  2. CELECOXIB [Concomitant]
     Route: 048
  3. ANCHU-SAN [Concomitant]
     Route: 048
  4. DEPROMEL [Concomitant]
     Route: 048
  5. LENDORMIN [Concomitant]
     Route: 048
  6. EMPYNASE P [Concomitant]
     Route: 048
     Dates: start: 20120525
  7. KEFRAL [Concomitant]
     Route: 048
  8. THYRADIN S [Concomitant]
     Route: 048
  9. CONIEL [Concomitant]
     Route: 048
  10. OLMETEC [Concomitant]
     Route: 048
  11. ALL OTHER THERAPEUTICS [Concomitant]
     Route: 048
  12. FAMOTIDINE [Concomitant]
     Route: 048
  13. MECOBALAMIN [Concomitant]
     Route: 048
  14. PANALDINE [Concomitant]
     Route: 048
  15. VITANEURIN [Concomitant]
     Route: 048
  16. PURSENNID [Concomitant]
     Route: 048
  17. MAGNESIUM OXIDE [Concomitant]
     Route: 048
  18. MOHRUS TAPE [Concomitant]
     Route: 061
  19. MOHRUS TAPE [Concomitant]
     Route: 061
  20. SELTOUCH [Concomitant]
     Route: 061
  21. SUMILU [Concomitant]
     Route: 061
  22. ALMETA [Concomitant]
     Route: 061
  23. MOHRUS [Concomitant]
     Route: 061
  24. VOLTAREN [Concomitant]
     Route: 061
  25. ISOSORBIDE DINITRATE [Concomitant]
     Route: 061
     Dates: start: 20120613
  26. LOCOID [Concomitant]
     Route: 061
     Dates: start: 20120615

REACTIONS (2)
  - Osteoarthritis [Recovering/Resolving]
  - Post procedural infection [Recovering/Resolving]
